FAERS Safety Report 8052382-X (Version None)
Quarter: 2012Q1

REPORT INFORMATION
  Report Type: 
  Country: None (occurrence: None)
  Receive Date: 20120118
  Receipt Date: 20120112
  Transmission Date: 20120608
  Serious: Yes (Other)
  Sender: FDA-Public Use
  Company Number: US-CELGENEUS-163-20785-11083622

PATIENT
  Sex: Female

DRUGS (1)
  1. THALOMID [Suspect]
     Dosage: 200 MILLIGRAM
     Dates: start: 20110629

REACTIONS (10)
  - FALL [None]
  - ORTHOSTATIC HYPOTENSION [None]
  - HYPERTENSION [None]
  - LIMB DISCOMFORT [None]
  - LOSS OF CONSCIOUSNESS [None]
  - PRURITUS [None]
  - CONSTIPATION [None]
  - NEUROPATHY PERIPHERAL [None]
  - FRACTURE [None]
  - HERPES ZOSTER [None]
